FAERS Safety Report 4369794-8 (Version None)
Quarter: 2004Q2

REPORT INFORMATION
  Report Type: 
  Country: None (occurrence: None)
  Receive Date: 20040525
  Receipt Date: 20040512
  Transmission Date: 20050107
  Serious: Yes (Other)
  Sender: FDA-Public Use
  Company Number: SE-JNJFOC-20040502690

PATIENT
  Age: 27 Year
  Sex: Male

DRUGS (3)
  1. INFLXIMAB           (INFLIXIMAB, RECOMBINANT) [Suspect]
     Indication: COLITIS ULCERATIVE
     Dosage: 5 MG/KG, INTRAVENOUS
     Route: 042
  2. GLUCORTICOSTEROIDS [Concomitant]
  3. 5-ASA (MESALAZINE) [Concomitant]

REACTIONS (2)
  - DEEP VEIN THROMBOSIS [None]
  - THERAPEUTIC RESPONSE DECREASED [None]
